FAERS Safety Report 16442788 (Version 2)
Quarter: 2019Q4

REPORT INFORMATION
  Report Type: Report from Study
  Country: IT (occurrence: IT)
  Receive Date: 20190617
  Receipt Date: 20191003
  Transmission Date: 20200122
  Serious: Yes (Other)
  Sender: FDA-Public Use
  Company Number: IT-GILEAD-2019-0413787

PATIENT
  Age: 62 Year
  Sex: Female

DRUGS (14)
  1. DOMPERIDONE [Concomitant]
     Active Substance: DOMPERIDONE
     Dosage: 10 MG
     Route: 048
  2. ATORVASTATIN CALCIUM. [Suspect]
     Active Substance: ATORVASTATIN CALCIUM
     Indication: HYPERCHOLESTEROLAEMIA
     Route: 065
     Dates: start: 20170405
  3. DOMPERIDONE [Concomitant]
     Active Substance: DOMPERIDONE
     Route: 048
  4. SODIUM BICARBONATE. [Concomitant]
     Active Substance: SODIUM BICARBONATE
     Route: 048
  5. LORMETAZEPAM [Concomitant]
     Active Substance: LORMETAZEPAM
     Route: 048
  6. DICLOFENAC [Suspect]
     Active Substance: DICLOFENAC
     Indication: ARTHRITIS
     Route: 030
     Dates: start: 20190312
  7. LORMETAZEPAM [Concomitant]
     Active Substance: LORMETAZEPAM
     Route: 048
  8. EZETIMIBE. [Suspect]
     Active Substance: EZETIMIBE
     Indication: HYPERCHOLESTEROLAEMIA
     Route: 048
     Dates: start: 20190101
  9. PANTOPRAZOLE [Suspect]
     Active Substance: PANTOPRAZOLE
     Indication: GASTROOESOPHAGEAL REFLUX DISEASE
     Route: 048
     Dates: start: 20170405
  10. COLECALCIFEROL [Concomitant]
     Active Substance: CHOLECALCIFEROL
  11. RANOLAZINE. [Suspect]
     Active Substance: RANOLAZINE
     Indication: ANGINA PECTORIS
     Dosage: 750 MG, QD
     Route: 048
     Dates: start: 20170405
  12. AMLODIPINE BESILATE, INDAPAMIDE, PERINDOPRIL ARGININE [Suspect]
     Active Substance: AMLODIPINE BESYLATE\INDAPAMIDE\PERINDOPRIL ARGININE
     Indication: HYPERTENSION
     Route: 048
     Dates: start: 20190301
  13. ACETYLSALICYLIC ACID [Suspect]
     Active Substance: ASPIRIN
     Indication: EMBOLISM
     Route: 065
     Dates: start: 20170405
  14. SODIUM BICARBONATE. [Concomitant]
     Active Substance: SODIUM BICARBONATE
     Route: 048

REACTIONS (2)
  - Drug-induced liver injury [Recovering/Resolving]
  - Product use issue [Recovering/Resolving]

NARRATIVE: CASE EVENT DATE: 20170405
